FAERS Safety Report 9326387 (Version 3)
Quarter: 2018Q3

REPORT INFORMATION
  Report Type: Spontaneous
  Country: DE (occurrence: DE)
  Receive Date: 20130604
  Receipt Date: 20180809
  Transmission Date: 20181010
  Serious: Yes (Death)
  Sender: FDA-Public Use
  Company Number: DE-FRI-1000045598

PATIENT
  Age: 40 Year
  Sex: Female
  Weight: 47 kg

DRUGS (16)
  1. ACETAZOLAMIDE. [Suspect]
     Active Substance: ACETAZOLAMIDE
     Indication: PRODUCT USED FOR UNKNOWN INDICATION
     Dosage: 1 DF, QD
     Route: 065
  2. VALDOXAN [Suspect]
     Active Substance: AGOMELATINE
     Dosage: 50 MG, QD
     Route: 065
  3. LORAZEPAM. [Suspect]
     Active Substance: LORAZEPAM
     Indication: PRODUCT USED FOR UNKNOWN INDICATION
     Dosage: UNK UNK, PRN
     Route: 065
  4. VIMPAT [Suspect]
     Active Substance: LACOSAMIDE
     Indication: EPILEPSY
     Dosage: 100 MG, QAM
     Route: 065
  5. LAMOTRIGIN [Suspect]
     Active Substance: LAMOTRIGINE
     Dosage: 300 MG, QD
     Route: 065
  6. LAMOTRIGIN [Suspect]
     Active Substance: LAMOTRIGINE
     Dosage: 200 MG, QPM
     Route: 065
  7. LAMOTRIGIN [Suspect]
     Active Substance: LAMOTRIGINE
     Dosage: 100 MG, QAM
     Route: 065
  8. LAMOTRIGIN [Suspect]
     Active Substance: LAMOTRIGINE
     Indication: PRODUCT USED FOR UNKNOWN INDICATION
     Dosage: 350 MG, QD
     Route: 065
  9. CLONAZEPAM. [Suspect]
     Active Substance: CLONAZEPAM
     Indication: PRODUCT USED FOR UNKNOWN INDICATION
     Dosage: UNK
     Route: 065
  10. CITALOPRAM HYDROBROMIDE UNK [Suspect]
     Active Substance: CITALOPRAM HYDROBROMIDE
     Indication: PRODUCT USED FOR UNKNOWN INDICATION
     Dosage: UNK
     Route: 065
  11. VIMPAT [Suspect]
     Active Substance: LACOSAMIDE
     Dosage: 150 MG, QPM
     Route: 065
  12. VALDOXAN [Suspect]
     Active Substance: AGOMELATINE
     Indication: PRODUCT USED FOR UNKNOWN INDICATION
     Dosage: 25 MG, QD
     Route: 065
  13. CLOBAZAM [Suspect]
     Active Substance: CLOBAZAM
     Indication: PRODUCT USED FOR UNKNOWN INDICATION
     Dosage: UNK
     Route: 065
  14. KEPPRA [Suspect]
     Active Substance: LEVETIRACETAM
     Indication: EPILEPSY
     Dosage: 1.5 DF, BID
     Route: 065
  15. DIAMOX SEQUELS [Suspect]
     Active Substance: ACETAZOLAMIDE
     Indication: PRODUCT USED FOR UNKNOWN INDICATION
     Dosage: 3 DF, QD
     Route: 065
  16. LAMOTRIGIN [Suspect]
     Active Substance: LAMOTRIGINE
     Dosage: 50 MG, QAM

REACTIONS (3)
  - Overdose [Fatal]
  - Completed suicide [Fatal]
  - Toxicity to various agents [Fatal]
